FAERS Safety Report 4684355-9 (Version None)
Quarter: 2005Q2

REPORT INFORMATION
  Report Type: 
  Country: None (occurrence: None)
  Receive Date: 20050531
  Receipt Date: 20040917
  Transmission Date: 20051028
  Serious: Yes (Hospitalization)
  Sender: FDA-Public Use
  Company Number: 200416431US

PATIENT
  Age: 38 Year
  Sex: Female
  Weight: 72.7 kg

DRUGS (3)
  1. LOVENOX [Suspect]
     Indication: PROPHYLAXIS
     Dosage: 40 (X ONE DOSE 2 HOURS PRIOR TO SURGERY( MG  SC; 40 MG QD SC
     Route: 058
     Dates: start: 20040803, end: 20040803
  2. . [Concomitant]
  3. IBUPROFEN [Concomitant]

REACTIONS (4)
  - HAEMOGLOBIN DECREASED [None]
  - PELVIC HAEMATOMA [None]
  - PROTHROMBIN TIME SHORTENED [None]
  - THROMBOCYTOPENIA [None]
